FAERS Safety Report 21264385 (Version 10)
Quarter: 2023Q4

REPORT INFORMATION
  Report Type: Spontaneous
  Country: US (occurrence: US)
  Receive Date: 20220829
  Receipt Date: 20231109
  Transmission Date: 20240110
  Serious: Yes (Other)
  Sender: FDA-Public Use
  Company Number: US-GLAXOSMITHKLINE-US2022123083

PATIENT

DRUGS (4)
  1. ZEJULA [Suspect]
     Active Substance: NIRAPARIB
     Indication: Ovarian cancer
     Dosage: 200 MG, QD
     Dates: start: 20220808
  2. ZEJULA [Suspect]
     Active Substance: NIRAPARIB
     Dosage: 200 MG, QD
     Dates: end: 20231001
  3. ZEJULA [Suspect]
     Active Substance: NIRAPARIB
     Dosage: 200 MG, QD
     Dates: start: 20231007
  4. ZEJULA [Suspect]
     Active Substance: NIRAPARIB
     Indication: Ovarian cancer
     Dosage: 200 MG, QD
     Route: 048

REACTIONS (28)
  - Atrial fibrillation [Unknown]
  - Dysgeusia [Unknown]
  - Parosmia [Recovered/Resolved]
  - Fatigue [Unknown]
  - Vision blurred [Unknown]
  - Rash [Unknown]
  - Oropharyngeal pain [Recovered/Resolved]
  - Laryngitis [Not Recovered/Not Resolved]
  - Chest pain [Unknown]
  - Heart rate increased [Not Recovered/Not Resolved]
  - White blood cell disorder [Unknown]
  - Neutrophil count decreased [Unknown]
  - Platelet disorder [Unknown]
  - Constipation [Not Recovered/Not Resolved]
  - Malaise [Unknown]
  - Upper respiratory tract congestion [Unknown]
  - Productive cough [Not Recovered/Not Resolved]
  - Hepatic enzyme abnormal [Unknown]
  - Red blood cell count decreased [Unknown]
  - Gastroenteritis viral [Recovered/Resolved]
  - Vomiting [Recovered/Resolved]
  - Hyperhidrosis [Unknown]
  - Diarrhoea [Unknown]
  - Blood pressure increased [Unknown]
  - Alopecia [Unknown]
  - Tooth extraction [Unknown]
  - Pain in extremity [Recovering/Resolving]
  - Product dose omission issue [Unknown]

NARRATIVE: CASE EVENT DATE: 20220801
